FAERS Safety Report 16177867 (Version 1)
Quarter: 2019Q2

REPORT INFORMATION
  Report Type: Spontaneous
  Country: US (occurrence: US)
  Receive Date: 20190306
  Receipt Date: 20190306
  Transmission Date: 20190711
  Serious: No
  Sender: FDA-Public Use
  Company Number: None

PATIENT
  Age: 53 Year
  Sex: Female

DRUGS (4)
  1. LETAIRIS [Concomitant]
     Active Substance: AMBRISENTAN
  2. TADALAFIL TAB 20 MG [Suspect]
     Active Substance: TADALAFIL
     Route: 048
     Dates: start: 201902
  3. LASIX [Concomitant]
     Active Substance: FUROSEMIDE
  4. ZOLOFT [Concomitant]
     Active Substance: SERTRALINE HYDROCHLORIDE

REACTIONS (2)
  - Chest pain [None]
  - Upper-airway cough syndrome [None]

NARRATIVE: CASE EVENT DATE: 20190306
